FAERS Safety Report 17696966 (Version 2)
Quarter: 2020Q2

REPORT INFORMATION
  Report Type: Spontaneous
  Country: CN (occurrence: CN)
  Receive Date: 20200423
  Receipt Date: 20200427
  Transmission Date: 20200714
  Serious: Yes (Other)
  Sender: FDA-Public Use
  Company Number: CN-TERSERA THERAPEUTICS LLC-2020TRS001011

PATIENT

DRUGS (4)
  1. ZOLADEX [Suspect]
     Active Substance: GOSERELIN ACETATE
     Indication: METASTASES TO BONE
     Dosage: 3.6 MILLIGRAM, MONTHLY
     Route: 058
  2. CASODEX [Concomitant]
     Active Substance: BICALUTAMIDE
     Indication: BONE CANCER METASTATIC
     Dosage: UNK
     Route: 048
  3. ABIRATERONE. [Concomitant]
     Active Substance: ABIRATERONE ACETATE
     Indication: BONE CANCER METASTATIC
     Dosage: UNK
     Route: 065
  4. ZOLEDRONIC ACID [Concomitant]
     Active Substance: ZOLEDRONIC ACID
     Indication: BONE CANCER METASTATIC
     Dosage: UNK
     Route: 041

REACTIONS (2)
  - Circumstance or information capable of leading to medication error [Recovered/Resolved]
  - Malignant neoplasm progression [Recovered/Resolved]

NARRATIVE: CASE EVENT DATE: 2020
